FAERS Safety Report 23118737 (Version 1)
Quarter: 2023Q4

REPORT INFORMATION
  Report Type: Spontaneous
  Country: DK (occurrence: DK)
  Receive Date: 20231028
  Receipt Date: 20231028
  Transmission Date: 20240110
  Serious: Yes (Disabling)
  Sender: FDA-Public Use
  Company Number: None

PATIENT
  Age: 23 Year
  Sex: Female

DRUGS (1)
  1. LAMOTRIGINE [Suspect]
     Active Substance: LAMOTRIGINE
     Indication: Bipolar disorder
     Dosage: 400 MILLIGRAM DAILY;   STRENGTH: UNKNOWN
     Dates: start: 2021

REACTIONS (3)
  - Cognitive disorder [Recovering/Resolving]
  - Aphasia [Recovered/Resolved]
  - Learning disorder [Recovering/Resolving]

NARRATIVE: CASE EVENT DATE: 20210101
